FAERS Safety Report 24890169 (Version 1)
Quarter: 2025Q1

REPORT INFORMATION
  Report Type: Spontaneous
  Country: US (occurrence: None)
  Receive Date: 20250124
  Receipt Date: 20250124
  Transmission Date: 20250409
  Serious: Yes (Life-Threatening, Hospitalization, Other)
  Sender: FDA-CTU
  Company Number: None

PATIENT
  Age: 54 Year
  Sex: Female
  Weight: 45 kg

DRUGS (1)
  1. THYMOGLOBULIN [Suspect]
     Active Substance: LAPINE T-LYMPHOCYTE IMMUNE GLOBULIN
     Indication: Immunosuppression
     Route: 041

REACTIONS (9)
  - Acute hepatic failure [None]
  - Somnolence [None]
  - Mental disorder [None]
  - Hypoxia [None]
  - Hypoglycaemia [None]
  - Delayed graft function [None]
  - Dialysis [None]
  - Urinary bladder haematoma [None]
  - Renal haematoma [None]

NARRATIVE: CASE EVENT DATE: 20241031
